FAERS Safety Report 14169667 (Version 1)
Quarter: 2017Q4

REPORT INFORMATION
  Report Type: Spontaneous
  Country: CN (occurrence: CN)
  Receive Date: 20171108
  Receipt Date: 20171108
  Transmission Date: 20180321
  Serious: Yes (Other)
  Sender: FDA-Public Use
  Company Number: CN-BAYER-2017-209502

PATIENT
  Sex: Male

DRUGS (2)
  1. GLUCOBAY [Suspect]
     Active Substance: ACARBOSE
     Dosage: UNK
  2. GLUCOBAY [Suspect]
     Active Substance: ACARBOSE
     Dosage: UNK
     Route: 048

REACTIONS (2)
  - Hyperglycaemia [None]
  - Drug ineffective [None]

NARRATIVE: CASE EVENT DATE: 201710
